FAERS Safety Report 16319896 (Version 1)
Quarter: 2019Q2

REPORT INFORMATION
  Report Type: Spontaneous
  Country: US (occurrence: US)
  Receive Date: 20190516
  Receipt Date: 20190516
  Transmission Date: 20190711
  Serious: Yes (Other)
  Sender: FDA-Public Use
  Company Number: PHEH2019US020884

PATIENT
  Age: 48 Year
  Sex: Male

DRUGS (1)
  1. TASIGNA [Suspect]
     Active Substance: NILOTINIB
     Indication: CHRONIC MYELOID LEUKAEMIA
     Dosage: 400 MG, BID
     Route: 065
     Dates: start: 2014

REACTIONS (13)
  - Acute kidney injury [Unknown]
  - Tricuspid valve incompetence [Unknown]
  - Left ventricular hypertrophy [Unknown]
  - Cerebrovascular accident [Unknown]
  - Transient ischaemic attack [Unknown]
  - Ataxia [Unknown]
  - Myalgia [Unknown]
  - Mitral valve incompetence [Unknown]
  - Aortic valve incompetence [Unknown]
  - Arthralgia [Unknown]
  - Encephalopathy [Unknown]
  - Dysarthria [Unknown]
  - Nausea [Unknown]

NARRATIVE: CASE EVENT DATE: 20170622
